FAERS Safety Report 5473411-3 (Version None)
Quarter: 2007Q4

REPORT INFORMATION
  Report Type: 
  Country: None (occurrence: None)
  Receive Date: 20071001
  Receipt Date: 20070921
  Transmission Date: 20080405
  Serious: Yes (Hospitalization, Other)
  Sender: FDA-Public Use
  Company Number: GB-BAUSCH-2007BL003452

PATIENT
  Age: 20 Year
  Sex: Male

DRUGS (3)
  1. TOBRAMYCIN [Suspect]
     Indication: ANTI-INFECTIVE THERAPY
     Route: 042
     Dates: start: 20000401, end: 20000416
  2. COLOMYCIN [Concomitant]
     Indication: ANTI-INFECTIVE THERAPY
     Route: 042
     Dates: start: 20000401, end: 20000401
  3. DICLOFENAC [Concomitant]
     Indication: MUSCULOSKELETAL CHEST PAIN

REACTIONS (1)
  - RENAL FAILURE ACUTE [None]
